FAERS Safety Report 19889775 (Version 1)
Quarter: 2021Q3

REPORT INFORMATION
  Report Type: Spontaneous
  Country: CZ (occurrence: CZ)
  Receive Date: 20210928
  Receipt Date: 20210928
  Transmission Date: 20211014
  Serious: Yes (Death, Hospitalization, Other)
  Sender: FDA-Public Use
  Company Number: CZ-MYLANLABS-2021M1066858

PATIENT
  Age: 32 Year
  Sex: Female

DRUGS (5)
  1. VINORELBINE [Suspect]
     Active Substance: VINORELBINE TARTRATE
     Indication: HODGKIN^S DISEASE
     Dosage: 2 CYCLES DURING 2011 AND 2014
     Route: 065
  2. METHOTREXATE. [Suspect]
     Active Substance: METHOTREXATE
     Indication: HODGKIN^S DISEASE
     Dosage: 12 MG, DURING THE FIRST BVB CYCLE
     Route: 037
  3. CYTARABINE. [Suspect]
     Active Substance: CYTARABINE
     Indication: HODGKIN^S DISEASE
     Dosage: 40 MG, DURING THE FIRST BVB CYCLE
     Route: 037
  4. GEMCITABINE. [Suspect]
     Active Substance: GEMCITABINE
     Indication: HODGKIN^S DISEASE
     Dosage: 2 CYCLES DURING 2011 AND 2014
     Route: 065
  5. HYDROCORTISONE. [Suspect]
     Active Substance: HYDROCORTISONE
     Indication: HODGKIN^S DISEASE
     Dosage: 50 MG, DURING THE FIRST BVB CYCLE
     Route: 037

REACTIONS (3)
  - Maternal exposure during pregnancy [Unknown]
  - Hodgkin^s disease stage IV [Fatal]
  - Product use in unapproved indication [Unknown]
